FAERS Safety Report 7778723-6 (Version None)
Quarter: 2011Q3

REPORT INFORMATION
  Report Type: 
  Country: None (occurrence: None)
  Receive Date: 20110926
  Receipt Date: 20110919
  Transmission Date: 20111222
  Serious: No
  Sender: FDA-Public Use
  Company Number: US-BAYER-2011-088280

PATIENT
  Sex: Female

DRUGS (1)
  1. MIRENA [Suspect]
     Dosage: 20 ?G/D, CONT
     Route: 015

REACTIONS (8)
  - ABDOMINAL DISCOMFORT [None]
  - CONSTIPATION [None]
  - WEIGHT INCREASED [None]
  - FEELING ABNORMAL [None]
  - BREAST ENLARGEMENT [None]
  - DIZZINESS [None]
  - DYSSTASIA [None]
  - HEADACHE [None]
